FAERS Safety Report 13014536 (Version 1)
Quarter: 2016Q4

REPORT INFORMATION
  Report Type: Spontaneous
  Country: CH (occurrence: CH)
  Receive Date: 20161209
  Receipt Date: 20161209
  Transmission Date: 20170207
  Serious: Yes (Hospitalization, Other)
  Sender: FDA-Public Use
  Company Number: CH-PFIZER INC-2016532730

PATIENT
  Age: 66 Year
  Sex: Female
  Weight: 154 kg

DRUGS (4)
  1. ATENOLOL MEPHA [Concomitant]
     Dosage: 25 MG, 1X/DAY
     Route: 048
  2. DALACIN C [Suspect]
     Active Substance: CLINDAMYCIN PHOSPHATE
     Dosage: 300 MG, 3X/DAY
     Route: 048
     Dates: start: 20161021, end: 20161025
  3. CIPROFLOXACIN SPIRIG HC [Suspect]
     Active Substance: CIPROFLOXACIN HYDROCHLORIDE
     Dosage: 250 MG, 2X/DAY
     Route: 048
     Dates: start: 20161021, end: 20161025
  4. COSAAR PLUS [Concomitant]
     Active Substance: HYDROCHLOROTHIAZIDE\LOSARTAN
     Dosage: 1 DF, 1X/DAY
     Route: 048

REACTIONS (1)
  - Acute kidney injury [Recovered/Resolved]

NARRATIVE: CASE EVENT DATE: 20161025
